FAERS Safety Report 15067070 (Version 1)
Quarter: 2018Q2

REPORT INFORMATION
  Report Type: Spontaneous
  Country: US (occurrence: US)
  Receive Date: 20180626
  Receipt Date: 20180626
  Transmission Date: 20180711
  Serious: Yes (Other)
  Sender: FDA-Public Use
  Company Number: US-GLAXOSMITHKLINE-US2018111438

PATIENT
  Sex: Female

DRUGS (3)
  1. LOVAZA [Suspect]
     Active Substance: OMEGA-3-ACID ETHYL ESTERS
     Indication: BLOOD CHOLESTEROL ABNORMAL
     Dosage: 3 G, QD
     Route: 048
  2. LOVAZA [Suspect]
     Active Substance: OMEGA-3-ACID ETHYL ESTERS
     Indication: BLOOD TRIGLYCERIDES ABNORMAL
     Dosage: 4 G, QD
     Route: 048
     Dates: start: 1998
  3. LOVAZA [Suspect]
     Active Substance: OMEGA-3-ACID ETHYL ESTERS
     Dosage: 2 G, QD
     Route: 048

REACTIONS (5)
  - Underdose [Unknown]
  - Visual impairment [Not Recovered/Not Resolved]
  - Drug effect decreased [Recovered/Resolved]
  - Corneal scar [Not Recovered/Not Resolved]
  - Ulcerative keratitis [Recovered/Resolved]

NARRATIVE: CASE EVENT DATE: 20180517
